FAERS Safety Report 7081962-3 (Version None)
Quarter: 2010Q4

REPORT INFORMATION
  Report Type: 
  Country: None (occurrence: None)
  Receive Date: 20101103
  Receipt Date: 20101026
  Transmission Date: 20110411
  Serious: Yes (Other)
  Sender: FDA-Public Use
  Company Number: CA-PFIZER INC-2010136051

PATIENT
  Age: 72 Year
  Sex: Male

DRUGS (1)
  1. XALATAN [Suspect]
     Dosage: UNK
     Route: 047
     Dates: start: 20100801

REACTIONS (4)
  - FORMICATION [None]
  - NERVOUSNESS [None]
  - POOR QUALITY SLEEP [None]
  - PRURITUS GENERALISED [None]
